FAERS Safety Report 16965760 (Version 1)
Quarter: 2019Q4

REPORT INFORMATION
  Report Type: Spontaneous
  Country: VN (occurrence: VN)
  Receive Date: 20191026
  Receipt Date: 20191026
  Transmission Date: 20200122
  Serious: Yes (Life-Threatening, Hospitalization)
  Sender: FDA-Public Use
  Company Number: None

PATIENT
  Age: 32 Year
  Sex: Male
  Weight: 72 kg

DRUGS (5)
  1. COLCHICINE. [Concomitant]
     Active Substance: COLCHICINE
  2. MELOXICAM. [Concomitant]
     Active Substance: MELOXICAM
  3. METHYLPREDNISOLONE. [Concomitant]
     Active Substance: METHYLPREDNISOLONE
  4. ALLOPURINOL 300MG [Suspect]
     Active Substance: ALLOPURINOL
     Indication: GOUT
     Dosage: ?          QUANTITY:1 CAPSULE(S);?
     Route: 048
     Dates: start: 20191008, end: 20191018
  5. ESOMEPRAZOLE. [Concomitant]
     Active Substance: ESOMEPRAZOLE MAGNESIUM

REACTIONS (5)
  - Drug hypersensitivity [None]
  - Pyrexia [None]
  - Pharyngeal ulceration [None]
  - Fatigue [None]
  - Stevens-Johnson syndrome [None]

NARRATIVE: CASE EVENT DATE: 20191020
